FAERS Safety Report 7840034 (Version 4)
Quarter: 2015Q1

REPORT INFORMATION
  Report Type: Spontaneous
  Country: US (occurrence: US)
  Receive Date: 20110303
  Receipt Date: 20150114
  Transmission Date: 20150721
  Serious: Yes (Hospitalization)
  Sender: FDA-Public Use
  Company Number: US-BAYER-2011-019344

PATIENT
  Age: 24 Year
  Sex: Female
  Weight: 95.24 kg

DRUGS (16)
  1. ECHINACEA [Concomitant]
     Active Substance: ECHINACEA, UNSPECIFIED
     Dosage: DAILY
  2. ADVIL [Concomitant]
     Active Substance: IBUPROFEN
     Indication: HEADACHE
     Dosage: UNK UNK, PRN
  3. IRON SUPPLEMENT [Concomitant]
     Active Substance: IRON
  4. ZOLOFT [Concomitant]
     Active Substance: SERTRALINE HYDROCHLORIDE
  5. ATIVAN [Concomitant]
     Active Substance: LORAZEPAM
  6. STATIN [Concomitant]
     Active Substance: UNSPECIFIED INGREDIENT
  7. ZOCOR [Concomitant]
     Active Substance: SIMVASTATIN
  8. METFORMIN [Concomitant]
     Active Substance: METFORMIN HYDROCHLORIDE
     Indication: POLYCYSTIC OVARIES
     Dosage: UNK
     Dates: start: 2011
  9. YAZ [Suspect]
     Active Substance: DROSPIRENONE\ETHINYL ESTRADIOL
     Indication: CONTRACEPTION
  10. FIORICET [Concomitant]
     Active Substance: ACETAMINOPHEN\BUTALBITAL\CAFFEINE
  11. BIOTIN [Concomitant]
     Active Substance: BIOTIN
     Dosage: DAILY
  12. LISINOPRIL. [Concomitant]
     Active Substance: LISINOPRIL
  13. TYLENOL WITH CODEINE [Concomitant]
     Active Substance: ACETAMINOPHEN\CODEINE PHOSPHATE
  14. OCELLA [Suspect]
     Active Substance: DROSPIRENONE\ETHINYL ESTRADIOL
     Indication: POLYCYSTIC OVARIES
     Dosage: UNK
     Route: 048
     Dates: start: 200903, end: 200905
  15. YASMIN [Suspect]
     Active Substance: DROSPIRENONE\ETHINYL ESTRADIOL
     Indication: POLYCYSTIC OVARIES
     Dosage: UNK
     Dates: start: 200903, end: 200905
  16. GARLIC. [Concomitant]
     Active Substance: GARLIC
     Dosage: DAILY

REACTIONS (3)
  - Learning disorder [None]
  - Cerebrovascular accident [None]
  - Depression [None]

NARRATIVE: CASE EVENT DATE: 20090531
